FAERS Safety Report 6468779-5 (Version None)
Quarter: 2009Q4

REPORT INFORMATION
  Report Type: 
  Country: None (occurrence: None)
  Receive Date: 20091203
  Receipt Date: 20081205
  Transmission Date: 20100525
  Serious: Yes (Hospitalization, Other)
  Sender: FDA-Public Use
  Company Number: US-ELI_LILLY_AND_COMPANY-US200610000434

PATIENT
  Sex: Female

DRUGS (5)
  1. FORTEO [Suspect]
     Indication: OSTEOPOROSIS
     Dosage: UNK, UNK
     Dates: start: 20040201, end: 20040101
  2. FORTEO [Suspect]
     Dosage: UNK, UNK
     Dates: start: 20060601, end: 20080601
  3. GLUCOPHAGE [Concomitant]
     Indication: DIABETES MELLITUS
  4. ACTONEL [Concomitant]
  5. MIACALCIN [Concomitant]

REACTIONS (9)
  - ABDOMINAL PAIN [None]
  - BODY HEIGHT DECREASED [None]
  - CHOLELITHIASIS [None]
  - FEELING ABNORMAL [None]
  - GALLBLADDER DISORDER [None]
  - HERNIA [None]
  - KNEE OPERATION [None]
  - PLEURAL EFFUSION [None]
  - TOOTH LOSS [None]
